FAERS Safety Report 23658610 (Version 1)
Quarter: 2024Q1

REPORT INFORMATION
  Report Type: Spontaneous
  Country: PT (occurrence: PT)
  Receive Date: 20240321
  Receipt Date: 20240321
  Transmission Date: 20240410
  Serious: Yes (Other)
  Sender: FDA-Public Use
  Company Number: PT-FreseniusKabi-FK202404494

PATIENT
  Age: 78 Year
  Sex: Female

DRUGS (1)
  1. ATROPINE [Suspect]
     Active Substance: ATROPINE\ATROPINE SULFATE
     Indication: Bradycardia
     Route: 042

REACTIONS (1)
  - Hypertensive emergency [Recovered/Resolved]
